FAERS Safety Report 11263378 (Version 3)
Quarter: 2015Q3

REPORT INFORMATION
  Report Type: Report from Study
  Country: DE (occurrence: DE)
  Receive Date: 20150712
  Receipt Date: 20150729
  Transmission Date: 20151125
  Serious: No
  Sender: FDA-Public Use
  Company Number: DE-009507513-1507DEU003770

PATIENT
  Age: 42 Year
  Sex: Female
  Weight: 62 kg

DRUGS (6)
  1. GRAZAX [Suspect]
     Active Substance: PHLEUM PRATENSE POLLEN
     Dosage: 75000 SQ-T; DAILY
     Route: 060
     Dates: start: 201404, end: 20140813
  2. SERETIDE [Concomitant]
     Active Substance: FLUTICASONE FUROATE\SALMETEROL XINAFOATE
     Indication: ASTHMA
     Dosage: 1-2 DAILY IF NEEDED
  3. GRAZAX [Suspect]
     Active Substance: PHLEUM PRATENSE POLLEN
     Indication: SEASONAL ALLERGY
     Dosage: 75000 SQ-T; DAILY
     Route: 060
     Dates: start: 20120411, end: 201404
  4. SLITONE [Suspect]
     Active Substance: ALLERGENIC EXTRACTS
     Indication: HOUSE DUST ALLERGY
     Dosage: UNK, UNKNOWN
     Route: 058
     Dates: start: 20120411, end: 201404
  5. SLITONE [Suspect]
     Active Substance: ALLERGENIC EXTRACTS
     Dosage: UNK, UNKNOWN
     Route: 058
     Dates: start: 201404, end: 20140923
  6. NASONEX [Concomitant]
     Active Substance: MOMETASONE FUROATE
     Indication: RHINITIS ALLERGIC
     Dosage: 1-2 DAILY IF NEEDED

REACTIONS (3)
  - Dermatitis acneiform [Recovered/Resolved]
  - Allergic respiratory disease [Not Recovered/Not Resolved]
  - Urticaria [Recovered/Resolved]

NARRATIVE: CASE EVENT DATE: 2012
